FAERS Safety Report 4571128-0 (Version None)
Quarter: 2005Q1

REPORT INFORMATION
  Report Type: 
  Country: None (occurrence: None)
  Receive Date: 20050202
  Receipt Date: 20050114
  Transmission Date: 20050727
  Serious: Yes (Hospitalization)
  Sender: FDA-Public Use
  Company Number: FR_050105612

PATIENT
  Age: 38 Year
  Sex: Female

DRUGS (4)
  1. PROZAC [Suspect]
     Dosage: 20 MG/2 DAY
     Dates: start: 20040901
  2. XANAX (ALPRAZOLAM DUM) [Concomitant]
  3. IMOVANE (ZOPICLONE) [Concomitant]
  4. ... [Concomitant]

REACTIONS (3)
  - OVERDOSE [None]
  - RESPIRATORY DEPRESSION [None]
  - SUICIDE ATTEMPT [None]
